FAERS Safety Report 7470130-9 (Version None)
Quarter: 2011Q2

REPORT INFORMATION
  Report Type: 
  Country: None (occurrence: None)
  Receive Date: 20110510
  Receipt Date: 20110503
  Transmission Date: 20111010
  Serious: Yes (Other)
  Sender: FDA-Public Use
  Company Number: A0925473A

PATIENT
  Sex: Female

DRUGS (6)
  1. EFFEXOR [Concomitant]
     Route: 065
  2. DOMPERIDONE [Concomitant]
     Route: 065
  3. MAXERAN [Concomitant]
     Route: 065
  4. RIVOTRIL [Concomitant]
     Route: 065
  5. TYKERB [Suspect]
     Dosage: 750MG PER DAY
     Route: 048
     Dates: start: 20101231, end: 20110420
  6. PANTOLOC [Concomitant]
     Route: 065

REACTIONS (1)
  - BREAST CANCER METASTATIC [None]
